FAERS Safety Report 8619498-8 (Version None)
Quarter: 2012Q3

REPORT INFORMATION
  Report Type: 
  Country: None (occurrence: None)
  Receive Date: 20120824
  Receipt Date: 20120327
  Transmission Date: 20120928
  Serious: No
  Sender: FDA-Public Use
  Company Number: US-ASTRAZENECA-2012SE20752

PATIENT
  Age: 67 Year
  Sex: Female

DRUGS (2)
  1. NEXIUM [Suspect]
     Route: 048
  2. SYMBICORT [Suspect]
     Dosage: 160/4.5 MCG, UNKNOWN
     Route: 055

REACTIONS (4)
  - ASTHMA [None]
  - UPPER-AIRWAY COUGH SYNDROME [None]
  - SINUSITIS [None]
  - MALAISE [None]
